FAERS Safety Report 4351094-3 (Version None)
Quarter: 2004Q2

REPORT INFORMATION
  Report Type: 
  Country: None (occurrence: None)
  Receive Date: 20040428
  Receipt Date: 20030918
  Transmission Date: 20050107
  Serious: Yes (Other)
  Sender: FDA-Public Use
  Company Number: US-JNJFOC-20030600616

PATIENT
  Age: 46 Year
  Sex: Female

DRUGS (4)
  1. ULTRAM [Suspect]
     Indication: PAIN
     Dates: start: 19970101
  2. ULTRAM [Suspect]
     Indication: PAIN
     Dates: start: 20030101
  3. FIORICET [Concomitant]
  4. PREVACID [Concomitant]

REACTIONS (1)
  - CONVULSION [None]
